FAERS Safety Report 25884340 (Version 1)
Quarter: 2025Q4

REPORT INFORMATION
  Report Type: Report from Study
  Country: PK (occurrence: PK)
  Receive Date: 20251006
  Receipt Date: 20251006
  Transmission Date: 20260118
  Serious: Yes (Death, Other)
  Sender: ROCHE
  Company Number: PK-ROCHE-10000399017

PATIENT
  Age: 47 Year
  Sex: Male

DRUGS (2)
  1. TECENTRIQ [Suspect]
     Active Substance: ATEZOLIZUMAB
     Indication: Non-small cell lung cancer
     Route: 042
     Dates: start: 20240615
  2. TECENTRIQ [Suspect]
     Active Substance: ATEZOLIZUMAB
     Route: 042
     Dates: start: 20240615

REACTIONS (9)
  - Respiratory failure [Fatal]
  - Disease progression [Unknown]
  - Metastatic neoplasm [Unknown]
  - General physical health deterioration [Unknown]
  - Asthenia [Unknown]
  - Decreased appetite [Unknown]
  - Respiratory distress [Unknown]
  - Immune system disorder [Unknown]
  - Dependence on respirator [Unknown]

NARRATIVE: CASE EVENT DATE: 20250630
